FAERS Safety Report 14227623 (Version 1)
Quarter: 2017Q4

REPORT INFORMATION
  Report Type: Not Available
  Country: US (occurrence: US)
  Receive Date: 20171127
  Receipt Date: 20171127
  Transmission Date: 20180321
  Serious: Yes (Hospitalization)
  Sender: FDA-Public Use
  Company Number: US-BEAUTYAVENUES-2017-US-013542

PATIENT
  Age: 16 Year
  Sex: Male

DRUGS (1)
  1. PUMPKIN CUPCAKE HAND SANITIZER [Suspect]
     Active Substance: ALCOHOL
     Dosage: 1 OUNCE ONCE
     Route: 048
     Dates: start: 20171111

REACTIONS (6)
  - Sneezing [Unknown]
  - Intentional product use issue [None]
  - Somnolence [Unknown]
  - Intentional product misuse [Unknown]
  - Pharyngeal erythema [Unknown]
  - Dyspepsia [Unknown]

NARRATIVE: CASE EVENT DATE: 20171111
